FAERS Safety Report 11593070 (Version 3)
Quarter: 2016Q1

REPORT INFORMATION
  Report Type: Report from Study
  Country: JP (occurrence: JP)
  Receive Date: 20151005
  Receipt Date: 20160122
  Transmission Date: 20160525
  Serious: Yes (Other)
  Sender: FDA-Public Use
  Company Number: JP-PFIZER INC-2015327688

PATIENT
  Sex: Male

DRUGS (2)
  1. SIROLIMUS. [Suspect]
     Active Substance: SIROLIMUS
     Indication: LYMPHANGIOLEIOMYOMATOSIS
     Dosage: 0.5 MG, DAILY
     Dates: start: 20150617, end: 20150701
  2. SIROLIMUS. [Suspect]
     Active Substance: SIROLIMUS
     Dosage: 0.5 MG, 2X/DAY
     Dates: start: 20150702

REACTIONS (5)
  - Lymphopenia [Unknown]
  - Aspartate aminotransferase increased [Recovered/Resolved]
  - Lymphocyte count decreased [Unknown]
  - Alanine aminotransferase increased [Recovered/Resolved]
  - Blood immunoglobulin G decreased [Not Recovered/Not Resolved]

NARRATIVE: CASE EVENT DATE: 20150629
